FAERS Safety Report 15432278 (Version 2)
Quarter: 2018Q4

REPORT INFORMATION
  Report Type: Spontaneous
  Country: US (occurrence: US)
  Receive Date: 20180926
  Receipt Date: 20181102
  Transmission Date: 20190204
  Serious: No
  Sender: FDA-Public Use
  Company Number: US-GILEAD-2018-0364544

PATIENT
  Age: 22 Year
  Sex: Female
  Weight: 55.06 kg

DRUGS (1)
  1. GENVOYA [Suspect]
     Active Substance: COBICISTAT\ELVITEGRAVIR\EMTRICITABINE\TENOFOVIR ALAFENAMIDE FUMARATE
     Indication: HIV INFECTION
     Dosage: DAILY
     Route: 048
     Dates: start: 20170217

REACTIONS (1)
  - Maternal exposure during pregnancy [Not Recovered/Not Resolved]
